FAERS Safety Report 5931040-9 (Version None)
Quarter: 2008Q4

REPORT INFORMATION
  Report Type: 
  Country: None (occurrence: None)
  Receive Date: 20081027
  Receipt Date: 20081017
  Transmission Date: 20090506
  Serious: Yes (Hospitalization)
  Sender: FDA-Public Use
  Company Number: NL-AVENTIS-200819205GDDC

PATIENT
  Age: 67 Year
  Sex: Male
  Weight: 71.6 kg

DRUGS (8)
  1. DOCETAXEL [Suspect]
     Route: 042
     Dates: start: 20080919, end: 20080919
  2. OTHER ANTINEOPLASTIC AGENTS [Suspect]
     Route: 042
     Dates: start: 20080918, end: 20080918
  3. PARACETAMOLE [Concomitant]
     Dosage: DOSE: UNK
     Route: 048
     Dates: start: 20080610
  4. ENALAPRIL MALEATE [Concomitant]
     Dosage: DOSE: UNK
     Route: 048
     Dates: start: 20020101
  5. SIMVASTATIN [Concomitant]
     Dosage: DOSE: UNK
     Route: 048
     Dates: start: 20020101
  6. ACETYLSALICYLATE CALCIUM [Concomitant]
     Dosage: DOSE: UNK
     Route: 048
     Dates: start: 20020101
  7. TRAMADOL HCL [Concomitant]
     Dosage: DOSE: UNK
     Route: 048
     Dates: start: 20080101
  8. LORAZEPAM [Concomitant]
     Dosage: DOSE: UNK
     Route: 048
     Dates: start: 20080101

REACTIONS (12)
  - ANOREXIA [None]
  - ASPIRATION [None]
  - FATIGUE [None]
  - FISTULA [None]
  - INFECTION [None]
  - LYMPHADENOPATHY [None]
  - METASTASES TO LUNG [None]
  - NAUSEA [None]
  - NECROSIS [None]
  - PNEUMONIA [None]
  - SPINAL OSTEOARTHRITIS [None]
  - VOMITING [None]
